FAERS Safety Report 21518247 (Version 1)
Quarter: 2022Q4

REPORT INFORMATION
  Report Type: Report from Study
  Country: US (occurrence: US)
  Receive Date: 20221028
  Receipt Date: 20221028
  Transmission Date: 20230113
  Serious: No
  Sender: FDA-Public Use
  Company Number: US-ABBVIE-4166846

PATIENT
  Sex: Female

DRUGS (1)
  1. VENCLEXTA [Suspect]
     Active Substance: VENETOCLAX
     Indication: Chronic lymphocytic leukaemia
     Dosage: 100 MG TAKE 4 TABLETS BY MOUTH ONCE DAILY WITH FOOD AND A FULL GLASS
     Route: 048
     Dates: start: 2020

REACTIONS (2)
  - Fatigue [Unknown]
  - Oral discomfort [Unknown]
